FAERS Safety Report 5399756-3 (Version None)
Quarter: 2007Q3

REPORT INFORMATION
  Report Type: 
  Country: None (occurrence: None)
  Receive Date: 20070727
  Receipt Date: 20070718
  Transmission Date: 20080115
  Serious: Yes (Other)
  Sender: FDA-Public Use
  Company Number: US-PFIZER INC-2007060417

PATIENT
  Sex: Male
  Weight: 79.4 kg

DRUGS (5)
  1. LIPITOR [Suspect]
     Indication: CEREBROVASCULAR ACCIDENT
  2. LISINOPRIL [Concomitant]
  3. DULCOLAX [Concomitant]
  4. AGGRENOX [Concomitant]
  5. AMBIEN [Concomitant]

REACTIONS (4)
  - FEELING ABNORMAL [None]
  - MENTAL IMPAIRMENT [None]
  - NEUROPATHY [None]
  - PERONEAL NERVE PALSY [None]
